APPROVED DRUG PRODUCT: ZUPLENZ
Active Ingredient: ONDANSETRON
Strength: 4MG
Dosage Form/Route: FILM;ORAL
Application: N022524 | Product #001
Applicant: AQUESTIVE THERAPEUTICS INC
Approved: Jul 2, 2010 | RLD: Yes | RS: No | Type: DISCN

PATENTS:
Patent 9095577 | Expires: Jul 13, 2030
Patent 8580830 | Expires: Nov 23, 2029